FAERS Safety Report 25270893 (Version 1)
Quarter: 2025Q2

REPORT INFORMATION
  Report Type: Spontaneous
  Country: US (occurrence: US)
  Receive Date: 20250506
  Receipt Date: 20250506
  Transmission Date: 20250717
  Serious: Yes (Other)
  Sender: RANBAXY
  Company Number: US-SUN PHARMACEUTICAL INDUSTRIES LTD-2025R1-505203

PATIENT
  Age: 78 Year
  Sex: Male

DRUGS (4)
  1. FAMOTIDINE [Suspect]
     Active Substance: FAMOTIDINE
     Indication: Immunosuppressant drug therapy
     Route: 065
  2. PREDNISONE [Suspect]
     Active Substance: PREDNISONE
     Indication: Immunosuppressant drug therapy
     Dosage: 5 MILLIGRAM, QD
  3. APIXABAN [Suspect]
     Active Substance: APIXABAN
     Indication: Immunosuppressant drug therapy
     Route: 065
  4. MYCOPHENOLATE MOFETIL [Suspect]
     Active Substance: MYCOPHENOLATE MOFETIL
     Indication: Immunosuppression
     Dosage: 180 MILLIGRAM, BID
     Route: 065

REACTIONS (4)
  - Inflammatory bowel disease [Recovering/Resolving]
  - Diverticulum intestinal [Recovering/Resolving]
  - Toxicity to various agents [Unknown]
  - Abdominal pain [Recovering/Resolving]
